FAERS Safety Report 21468056 (Version 1)
Quarter: 2022Q4

REPORT INFORMATION
  Report Type: Spontaneous
  Country: US (occurrence: US)
  Receive Date: 20221017
  Receipt Date: 20221017
  Transmission Date: 20230112
  Serious: No
  Sender: FDA-Public Use
  Company Number: US-BEH-2022150757

PATIENT
  Sex: Female

DRUGS (1)
  1. HIZENTRA [Suspect]
     Active Substance: HUMAN IMMUNOGLOBULIN G
     Indication: Congenital hypogammaglobulinaemia
     Dosage: 12 GRAM, QW
     Route: 058
     Dates: start: 20200511

REACTIONS (3)
  - Urine output increased [Unknown]
  - Chromaturia [Unknown]
  - Urine odour abnormal [Unknown]
